FAERS Safety Report 17753664 (Version 1)
Quarter: 2020Q2

REPORT INFORMATION
  Report Type: Spontaneous
  Country: US (occurrence: US)
  Receive Date: 20200506
  Receipt Date: 20200506
  Transmission Date: 20200714
  Serious: No
  Sender: FDA-Public Use
  Company Number: US-ROCHE-2405712

PATIENT
  Sex: Male
  Weight: 113.5 kg

DRUGS (1)
  1. ESBRIET [Suspect]
     Active Substance: PIRFENIDONE
     Indication: IDIOPATHIC PULMONARY FIBROSIS
     Dosage: 2 PILLS 3X DAILY ;ONGOING: YES
     Route: 048
     Dates: start: 20190825

REACTIONS (1)
  - Increased appetite [Not Recovered/Not Resolved]
